FAERS Safety Report 21175316 (Version 2)
Quarter: 2023Q2

REPORT INFORMATION
  Report Type: Spontaneous
  Country: US (occurrence: US)
  Receive Date: 20220805
  Receipt Date: 20230426
  Transmission Date: 20230721
  Serious: Yes (Other)
  Sender: FDA-Public Use
  Company Number: US-SA-SAC20220804001116

PATIENT
  Age: 54 Year
  Sex: Male

DRUGS (6)
  1. ALPROLIX [Suspect]
     Active Substance: EFTRENONACOG ALFA
     Indication: Factor IX deficiency
     Dosage: 8000 UNITS (7200-8800), Q5D
     Route: 042
     Dates: start: 201708
  2. ALPROLIX [Suspect]
     Active Substance: EFTRENONACOG ALFA
     Indication: Factor IX deficiency
     Dosage: 8000 UNITS (7200-8800), Q5D
     Route: 042
     Dates: start: 201708
  3. ALPROLIX [Suspect]
     Active Substance: EFTRENONACOG ALFA
     Indication: Prophylaxis
     Dosage: 3285 U, Q5D
     Route: 042
     Dates: start: 202102
  4. ALPROLIX [Suspect]
     Active Substance: EFTRENONACOG ALFA
     Indication: Prophylaxis
     Dosage: 3285 U, Q5D
     Route: 042
     Dates: start: 202102
  5. ALPROLIX [Suspect]
     Active Substance: EFTRENONACOG ALFA
     Dosage: 4365 U, Q5D
  6. ALPROLIX [Suspect]
     Active Substance: EFTRENONACOG ALFA
     Dosage: 4365 U, Q5D

REACTIONS (2)
  - Haematoma [Unknown]
  - Spontaneous haemorrhage [Unknown]
